FAERS Safety Report 5660492-7 (Version None)
Quarter: 2008Q1

REPORT INFORMATION
  Report Type: 
  Country: None (occurrence: None)
  Receive Date: 20080214
  Receipt Date: 20071226
  Transmission Date: 20080703
  Serious: Yes (Other)
  Sender: FDA-Public Use
  Company Number: ALK_00506_2007

PATIENT
  Sex: Male
  Weight: 83.9154 kg

DRUGS (9)
  1. VIVITROL [Suspect]
     Indication: ALCOHOLISM
     Dosage: (380 MG 1X/MONTH INTRAMUSCULAR)
     Route: 030
     Dates: start: 20071220
  2. CYMBALTA [Concomitant]
  3. OXYCODONE HCL [Concomitant]
  4. VITAMIN B12 NOS [Concomitant]
  5. CENTRUM /00554501/ [Concomitant]
  6. ANDRODERM [Concomitant]
  7. VITAMIN B NOS [Concomitant]
  8. NOVAREL [Concomitant]
  9. XANAX [Concomitant]

REACTIONS (16)
  - AGITATION [None]
  - ANXIETY [None]
  - ASTHENIA [None]
  - BACK PAIN [None]
  - CONVULSION [None]
  - DECREASED APPETITE [None]
  - DEPRESSION [None]
  - DIARRHOEA [None]
  - DISTURBANCE IN ATTENTION [None]
  - INHIBITORY DRUG INTERACTION [None]
  - INSOMNIA [None]
  - MEMORY IMPAIRMENT [None]
  - MOOD SWINGS [None]
  - SUICIDAL IDEATION [None]
  - VOMITING [None]
  - WEIGHT DECREASED [None]
